FAERS Safety Report 8395675 (Version 3)
Quarter: 2014Q4

REPORT INFORMATION
  Report Type: Spontaneous
  Country: US (occurrence: US)
  Receive Date: 20120208
  Receipt Date: 20141201
  Transmission Date: 20150529
  Serious: Yes (Hospitalization, Other)
  Sender: FDA-Public Use
  Company Number: US-ROCHE-791415

PATIENT
  Age: 15 Year
  Sex: Male
  Weight: 97.61 kg

DRUGS (3)
  1. ACCUTANE [Suspect]
     Active Substance: ISOTRETINOIN
     Indication: ACNE
     Route: 048
  2. ACLOVATE [Concomitant]
     Active Substance: ALCLOMETASONE DIPROPIONATE
  3. ACCUTANE [Suspect]
     Active Substance: ISOTRETINOIN
     Route: 065
     Dates: start: 200005, end: 200108

REACTIONS (11)
  - Irritable bowel syndrome [Unknown]
  - Suicidal ideation [Unknown]
  - Colitis ulcerative [Unknown]
  - Depression [Unknown]
  - Skin exfoliation [Unknown]
  - Rash [Unknown]
  - Inflammatory bowel disease [Unknown]
  - Lip dry [Unknown]
  - Dermatitis [Unknown]
  - Dry skin [Unknown]
  - Haemorrhoids [Unknown]

NARRATIVE: CASE EVENT DATE: 19990621
